FAERS Safety Report 5663150-8 (Version None)
Quarter: 2008Q1

REPORT INFORMATION
  Report Type: 
  Country: None (occurrence: None)
  Receive Date: 20080313
  Receipt Date: 20080303
  Transmission Date: 20080703
  Serious: Yes (Hospitalization, Other)
  Sender: FDA-Public Use
  Company Number: BR-PFIZER INC-2005083877

PATIENT
  Sex: Female

DRUGS (3)
  1. LIPITOR [Suspect]
     Indication: DYSLIPIDAEMIA
     Route: 048
  2. VALSARTAN [Concomitant]
     Route: 048
  3. PURAN T4 [Concomitant]
     Route: 048

REACTIONS (6)
  - ANGINA PECTORIS [None]
  - CORONARY ARTERIAL STENT INSERTION [None]
  - HEART VALVE REPLACEMENT [None]
  - STENT PLACEMENT [None]
  - VASCULAR GRAFT [None]
  - VENOUS OCCLUSION [None]
